FAERS Safety Report 8461243-3 (Version None)
Quarter: 2012Q2

REPORT INFORMATION
  Report Type: 
  Country: None (occurrence: None)
  Receive Date: 20120619
  Receipt Date: 20120619
  Transmission Date: 20120825
  Serious: Yes (Other)
  Sender: FDA-Public Use
  Company Number: None

PATIENT
  Age: 63 Year
  Sex: Female

DRUGS (1)
  1. HALDOL [Suspect]
     Indication: STRESS
     Dosage: 1 INJECTION
     Dates: start: 20120529, end: 20120529

REACTIONS (4)
  - INJECTION SITE PAIN [None]
  - MUSCLE TIGHTNESS [None]
  - ARTHROPATHY [None]
  - MUSCLE DISORDER [None]
